FAERS Safety Report 16367221 (Version 1)
Quarter: 2019Q2

REPORT INFORMATION
  Report Type: Spontaneous
  Country: RO (occurrence: RO)
  Receive Date: 20190529
  Receipt Date: 20190529
  Transmission Date: 20190711
  Serious: Yes (Death, Other)
  Sender: FDA-Public Use
  Company Number: RO-ASTRAZENECA-2019SE78885

PATIENT
  Age: 60 Year
  Sex: Male

DRUGS (1)
  1. IRESSA [Suspect]
     Active Substance: GEFITINIB
     Indication: NON-SMALL CELL LUNG CANCER
     Route: 048
     Dates: start: 201811

REACTIONS (4)
  - Brain abscess [Fatal]
  - Leukocytosis [Unknown]
  - Pyrexia [Unknown]
  - Pleurisy [Unknown]
